FAERS Safety Report 10994301 (Version 2)
Quarter: 2015Q2

REPORT INFORMATION
  Report Type: Spontaneous
  Country: US (occurrence: None)
  Receive Date: 20150403
  Receipt Date: 20150522
  Transmission Date: 20150821
  Serious: Yes (Disabling, Other)
  Sender: FDA-Public Use
  Company Number: 2015-10970

PATIENT
  Age: 87 Year
  Sex: Male

DRUGS (5)
  1. DIOVAN [Concomitant]
     Active Substance: VALSARTAN
  2. PRESERVISION (ASCORBIC ACID, BETACAROTENE, CUPRIC OXIDE, TOCOPHERYL ACETATE, ZINC OXIDE) [Concomitant]
  3. OMEPRAZOLE. [Concomitant]
     Active Substance: OMEPRAZOLE
  4. EYLEA [Suspect]
     Active Substance: AFLIBERCEPT
     Indication: AGE-RELATED MACULAR DEGENERATION
  5. CENTRUM SILVER/02363801/ (ASCORBIC ACID, BIOTIN, CALCIUM, CALCIUM PANTOTHENATE, CHLORINE, CHROMIUM, COLECALCIFEROL, COPPER, CYANOCOBALAMIN, FOLIC ACID, IODINE, IRON, MAGNESIUM, MANGANESE, MOLYBDENUM, NICKEL, NICOTINAMIDE, PHOSPHORUS, PHYTOMENADIONE, POTASSIUM, PYRIDOXINE HYDROCHLORIDE, RETINOL, RIBOFLAVIN, SELENIUM, SILICON DIOXIDE, THIAMINE HYDROHCLORIDE, TOCEPHEROL, VANADIUM, ZINC) [Concomitant]

REACTIONS (3)
  - Blindness [None]
  - Endophthalmitis [None]
  - Vitrectomy [None]

NARRATIVE: CASE EVENT DATE: 20150324
